FAERS Safety Report 6091116-5 (Version None)
Quarter: 2009Q1

REPORT INFORMATION
  Report Type: 
  Country: None (occurrence: None)
  Receive Date: 20090225
  Receipt Date: 20090212
  Transmission Date: 20090719
  Serious: Yes (Other)
  Sender: FDA-Public Use
  Company Number: IE-CELGENEUS-229-20484-08101781

PATIENT
  Sex: Female

DRUGS (1)
  1. INNOHEP [Suspect]
     Indication: PROPHYLAXIS
     Dosage: 175IU/KG
     Route: 058

REACTIONS (3)
  - FALL [None]
  - HIP FRACTURE [None]
  - OSTEOPENIA [None]
